FAERS Safety Report 11752217 (Version 5)
Quarter: 2016Q1

REPORT INFORMATION
  Report Type: Spontaneous
  Country: US (occurrence: US)
  Receive Date: 20151118
  Receipt Date: 20160104
  Transmission Date: 20160525
  Serious: Yes (Hospitalization, Other)
  Sender: FDA-Public Use
  Company Number: US-GLAXOSMITHKLINE-US2015161102

PATIENT
  Age: 61 Year
  Sex: Female
  Weight: 54.42 kg

DRUGS (8)
  1. IODINE [Concomitant]
     Active Substance: IODINE
  2. LAMICTAL [Suspect]
     Active Substance: LAMOTRIGINE
     Indication: PRODUCT USED FOR UNKNOWN INDICATION
  3. MILK THISTLE [Concomitant]
     Active Substance: MILK THISTLE
  4. LAMOTRIGINE. [Suspect]
     Active Substance: LAMOTRIGINE
     Dosage: 50 MG, QD
     Dates: start: 20151223
  5. WHEY POWDER [Concomitant]
  6. LAMOTRIGINE. [Suspect]
     Active Substance: LAMOTRIGINE
     Indication: DEPRESSION
     Dosage: 100 MG, QD
  7. NATURAL THYROID [Concomitant]
  8. LAMOTRIGINE. [Suspect]
     Active Substance: LAMOTRIGINE
     Indication: BIPOLAR DISORDER
     Dosage: 200 MG, QD
     Route: 048
     Dates: end: 20151128

REACTIONS (11)
  - Liver function test abnormal [Unknown]
  - Oedema peripheral [Recovering/Resolving]
  - Faeces pale [Recovered/Resolved]
  - Mental disorder [Unknown]
  - Musculoskeletal disorder [Recovering/Resolving]
  - Respiratory tract congestion [Unknown]
  - Electroconvulsive therapy [Unknown]
  - Parkinson^s disease [Unknown]
  - Impaired healing [Unknown]
  - Urine output decreased [Recovered/Resolved]
  - Hypothyroidism [Unknown]

NARRATIVE: CASE EVENT DATE: 20150827
